FAERS Safety Report 7982921 (Version 2)
Quarter: 2013Q4

REPORT INFORMATION
  Report Type: Spontaneous
  Country: US (occurrence: US)
  Receive Date: 20110609
  Receipt Date: 20131204
  Transmission Date: 20140711
  Serious: Yes (Hospitalization, Other)
  Sender: FDA-Public Use
  Company Number: US-BAYER-2011-049370

PATIENT
  Age: 32 Year
  Sex: Female
  Weight: 91 kg

DRUGS (5)
  1. YAZ [Suspect]
     Indication: CONTRACEPTION
     Dosage: UNK
     Route: 048
     Dates: start: 200902, end: 200908
  2. YAZ [Suspect]
     Indication: PREMENSTRUAL SYNDROME
  3. ZOLOFT [Concomitant]
  4. PRILOSEC [Concomitant]
     Dosage: TWICE A DAY FOR 3 DAYS
     Route: 048
  5. FLUCONAZOLE [Concomitant]
     Dosage: 150 MG, TAKE AS DIRECTED ONE TIME

REACTIONS (4)
  - Gallbladder disorder [None]
  - Abdominal pain [None]
  - Cholelithiasis [None]
  - Cholecystitis chronic [None]
